FAERS Safety Report 17477850 (Version 7)
Quarter: 2021Q4

REPORT INFORMATION
  Report Type: Spontaneous
  Country: FR (occurrence: FR)
  Receive Date: 20200228
  Receipt Date: 20211123
  Transmission Date: 20220303
  Serious: Yes (Death, Hospitalization, Other)
  Sender: FDA-Public Use
  Company Number: FR-PFIZER INC-2020088702

PATIENT
  Age: 86 Year
  Sex: Female
  Weight: 77 kg

DRUGS (6)
  1. METHOTREXATE SODIUM [Suspect]
     Active Substance: METHOTREXATE SODIUM
     Indication: Rheumatoid arthritis
     Dosage: 10 MG, SCORED TABLET (TAKING 1.5 TABLET)
     Route: 048
     Dates: start: 20200121, end: 2020
  2. KARDEGIC [Concomitant]
     Active Substance: ASPIRIN DL-LYSINE
     Dosage: UNK
     Route: 065
  3. FLUOXETINE [Concomitant]
     Active Substance: FLUOXETINE HYDROCHLORIDE
     Dosage: UNK
     Route: 065
  4. PLAVIX [Concomitant]
     Active Substance: CLOPIDOGREL BISULFATE
     Dosage: UNK
     Route: 065
  5. REPAGLINIDE [Concomitant]
     Active Substance: REPAGLINIDE
     Dosage: UNK
     Route: 065
  6. PREDNISOLONE SODIUM METAZOATE [Concomitant]
     Active Substance: PREDNISOLONE SODIUM METAZOATE
     Dosage: UNK
     Route: 065

REACTIONS (17)
  - Multiple organ dysfunction syndrome [Fatal]
  - Diarrhoea [Fatal]
  - Asthenia [Fatal]
  - Mouth ulceration [Fatal]
  - Dehydration [Fatal]
  - Accidental overdose [Fatal]
  - Bone marrow failure [Fatal]
  - Inappropriate schedule of product administration [Fatal]
  - Contraindicated product administered [Fatal]
  - Haematotoxicity [Fatal]
  - Sepsis [Fatal]
  - Renal failure [Fatal]
  - Cardiac failure [Fatal]
  - Vomiting [Unknown]
  - Anaemia [Unknown]
  - Neutropenia [Unknown]
  - Burning mouth syndrome [Unknown]

NARRATIVE: CASE EVENT DATE: 20200101
